FAERS Safety Report 4868091-1 (Version None)
Quarter: 2005Q4

REPORT INFORMATION
  Report Type: 
  Country: None (occurrence: None)
  Receive Date: 20051229
  Receipt Date: 20051124
  Transmission Date: 20060501
  Serious: Yes (Hospitalization, Other)
  Sender: FDA-Public Use
  Company Number: PHFR2005GB03858

PATIENT
  Age: 50 Year
  Sex: Female

DRUGS (6)
  1. CLOZARIL [Suspect]
     Indication: SCHIZOPHRENIA
     Dosage: 75MG/DAY
     Route: 048
     Dates: start: 20051030
  2. CLOZARIL [Suspect]
     Dosage: 14 X 25 MG
  3. PARACETAMOL [Suspect]
     Dosage: 16 DOSES
     Route: 065
  4. CO-TENIDONE [Concomitant]
     Indication: HYPERTENSION
     Dosage: 100/25 MG
     Route: 048
  5. MIRTAZAPINE [Concomitant]
     Indication: DEPRESSION
     Dosage: 45 MG/DAY
     Route: 048
     Dates: start: 20031123
  6. ZOPICLONE [Concomitant]
     Indication: INSOMNIA
     Dosage: 7.5 MG/DAY
     Route: 048
     Dates: start: 20051121

REACTIONS (4)
  - ACTIVATED PARTIAL THROMBOPLASTIN TIME ABNORMAL [None]
  - ANTIPHOSPHOLIPID ANTIBODIES POSITIVE [None]
  - HEPATOCELLULAR DAMAGE [None]
  - OVERDOSE [None]
